FAERS Safety Report 10079978 (Version 2)
Quarter: 2014Q2

REPORT INFORMATION
  Report Type: Spontaneous
  Country: US (occurrence: US)
  Receive Date: 20140415
  Receipt Date: 20140422
  Transmission Date: 20141212
  Serious: Yes (Other)
  Sender: FDA-Public Use
  Company Number: US-B.I. PHARMACEUTICALS,INC./RIDGEFIELD-2014-BI-16187BP

PATIENT
  Sex: Female
  Weight: 42.72 kg

DRUGS (1)
  1. SPIRIVA [Suspect]
     Indication: DYSPNOEA
     Dosage: 18 MCG
     Route: 055
     Dates: start: 2013

REACTIONS (4)
  - Lung neoplasm malignant [Not Recovered/Not Resolved]
  - Oral mucosal blistering [Recovered/Resolved]
  - Asthenia [Not Recovered/Not Resolved]
  - Product quality issue [Recovered/Resolved]
